FAERS Safety Report 9301241 (Version 1)
Quarter: 2013Q2

REPORT INFORMATION
  Report Type: Spontaneous
  Country: US (occurrence: US)
  Receive Date: 20130521
  Receipt Date: 20130521
  Transmission Date: 20140414
  Serious: No
  Sender: FDA-Public Use
  Company Number: US-ASTRAZENECA-2013SE31827

PATIENT
  Age: 53 Year
  Sex: Male
  Weight: 75.8 kg

DRUGS (8)
  1. ATACAND [Suspect]
     Indication: HYPERTENSION
     Route: 048
     Dates: start: 2001
  2. PRILOSEC [Suspect]
     Indication: HYPERCHLORHYDRIA
     Route: 048
     Dates: start: 2005
  3. PRILOSEC [Suspect]
     Indication: HYPERCHLORHYDRIA
     Route: 048
  4. PRILOSEC [Suspect]
     Indication: HYPERCHLORHYDRIA
     Route: 048
  5. AMLODIPINE [Suspect]
     Route: 065
     Dates: start: 2013
  6. CELEBREX [Concomitant]
     Indication: ARTHRITIS
  7. TYLENOL [Concomitant]
     Indication: ARTHRITIS
     Dosage: UNK PRN
  8. SULAR [Concomitant]
     Indication: BLOOD PRESSURE ABNORMAL
     Dates: end: 201302

REACTIONS (4)
  - Hyperchlorhydria [Unknown]
  - Dizziness [Recovered/Resolved]
  - Off label use [Unknown]
  - Off label use [Unknown]
